FAERS Safety Report 6085431-9 (Version None)
Quarter: 2009Q1

REPORT INFORMATION
  Report Type: 
  Country: None (occurrence: None)
  Receive Date: 20090220
  Receipt Date: 20090213
  Transmission Date: 20090719
  Serious: Yes (Disabling)
  Sender: FDA-Public Use
  Company Number: JP-ASTRAZENECA-2009AP01231

PATIENT
  Age: 66 Year
  Sex: Male

DRUGS (1)
  1. XYLOCAINE [Suspect]
     Dosage: 1 ML INTO EACH KNEE JOINT
     Route: 014
     Dates: start: 20090202

REACTIONS (1)
  - ARTHRITIS BACTERIAL [None]
